FAERS Safety Report 19633716 (Version 1)
Quarter: 2021Q3

REPORT INFORMATION
  Report Type: Spontaneous
  Country: US (occurrence: US)
  Receive Date: 20210729
  Receipt Date: 20210729
  Transmission Date: 20211014
  Serious: Yes (Other)
  Sender: FDA-Public Use
  Company Number: None

PATIENT
  Age: 100 Year
  Sex: Male
  Weight: 49.5 kg

DRUGS (1)
  1. VENOFER [Suspect]
     Active Substance: IRON SUCROSE
     Indication: ANAEMIA
     Dosage: ?          OTHER FREQUENCY:EVERY 3 WEEKS X 5;?
     Route: 042
     Dates: start: 20210701, end: 20210729

REACTIONS (3)
  - Anxiety [None]
  - Blood pressure increased [None]
  - Heart rate decreased [None]

NARRATIVE: CASE EVENT DATE: 20210729
